FAERS Safety Report 8772739 (Version 3)
Quarter: 2013Q4

REPORT INFORMATION
  Report Type: Spontaneous
  Country: KR (occurrence: KR)
  Receive Date: 20120906
  Receipt Date: 20131113
  Transmission Date: 20140711
  Serious: Yes (Other)
  Sender: FDA-Public Use
  Company Number: KR-009507513-1209KOR000150

PATIENT
  Sex: Female

DRUGS (2)
  1. MERCILON [Suspect]
     Indication: CONTRACEPTION
     Dosage: UNK
     Route: 048
  2. MERCILON [Suspect]
     Dosage: UNK
     Route: 048
     Dates: start: 201208

REACTIONS (3)
  - Abortion spontaneous [Unknown]
  - Uterine dilation and curettage [Unknown]
  - Unintended pregnancy [Recovered/Resolved]
